FAERS Safety Report 11343390 (Version 2)
Quarter: 2015Q3

REPORT INFORMATION
  Report Type: Spontaneous
  Country: CN (occurrence: CN)
  Receive Date: 20150806
  Receipt Date: 20150810
  Transmission Date: 20151125
  Serious: Yes (Other)
  Sender: FDA-Public Use
  Company Number: CN-009507513-1507CHN013349

PATIENT
  Age: 50 Year
  Sex: Male

DRUGS (2)
  1. PROSCAR [Suspect]
     Active Substance: FINASTERIDE
     Indication: BENIGN PROSTATIC HYPERPLASIA
     Dosage: 10 MG DAILY
     Route: 048
     Dates: start: 201506, end: 20150714
  2. PROSCAR [Suspect]
     Active Substance: FINASTERIDE
     Dosage: 5 MG DAILY
     Route: 048
     Dates: start: 20150715

REACTIONS (2)
  - Benign prostatic hyperplasia [Unknown]
  - Overdose [Unknown]

NARRATIVE: CASE EVENT DATE: 201506
